FAERS Safety Report 25952363 (Version 1)
Quarter: 2025Q4

REPORT INFORMATION
  Report Type: Spontaneous
  Country: EU (occurrence: EU)
  Receive Date: 20251023
  Receipt Date: 20251023
  Transmission Date: 20260117
  Serious: Yes (Death, Other)
  Sender: AUROBINDO
  Company Number: EU-AFSSAPS-PA2025000937

PATIENT
  Age: 53 Year
  Sex: Male
  Weight: 82 kg

DRUGS (10)
  1. CARBOPLATIN [Suspect]
     Active Substance: CARBOPLATIN
     Indication: Lung adenocarcinoma
     Dosage: 580 MILLIGRAM, CYCLICAL
     Route: 042
     Dates: start: 20250512, end: 20250718
  2. PEMETREXED [Suspect]
     Active Substance: PEMETREXED
     Indication: Lung adenocarcinoma
     Dosage: 580 MILLIGRAM, CYCLICAL
     Route: 042
     Dates: start: 20250512, end: 20250718
  3. RYBREVANT [Suspect]
     Active Substance: AMIVANTAMAB-VMJW
     Indication: Lung adenocarcinoma
     Dosage: 350 MILLIGRAM, CYCLICAL (J1)
     Route: 042
     Dates: start: 20250512, end: 20250512
  4. RYBREVANT [Suspect]
     Active Substance: AMIVANTAMAB-VMJW
     Dosage: 1400 MILLIGRAM, CYCLICAL (J2)
     Route: 042
     Dates: start: 20250513, end: 20250513
  5. RYBREVANT [Suspect]
     Active Substance: AMIVANTAMAB-VMJW
     Dosage: 1750 MILLIGRAM, CYCLICAL (J8)
     Route: 042
     Dates: start: 20250519, end: 20250519
  6. RYBREVANT [Suspect]
     Active Substance: AMIVANTAMAB-VMJW
     Dosage: 1750 MILLIGRAM, CYCLICAL ((J15)
     Route: 042
     Dates: start: 20250526, end: 20250526
  7. RYBREVANT [Suspect]
     Active Substance: AMIVANTAMAB-VMJW
     Dosage: 1750 MILLIGRAM, CYCLICAL (C2)
     Route: 042
     Dates: start: 20250603, end: 20250603
  8. RYBREVANT [Suspect]
     Active Substance: AMIVANTAMAB-VMJW
     Dosage: 1750 MILLIGRAM, CYCLICAL (C3)
     Route: 042
     Dates: start: 20250624, end: 20250624
  9. RYBREVANT [Suspect]
     Active Substance: AMIVANTAMAB-VMJW
     Dosage: 1750 MILLIGRAM, CYCLICAL (C4)
     Route: 042
     Dates: start: 20250718, end: 20250718
  10. ENHERTU [Concomitant]
     Active Substance: FAM-TRASTUZUMAB DERUXTECAN-NXKI
     Indication: Lung adenocarcinoma
     Dosage: 1 MILLIGRAM, CYCLICAL
     Route: 042
     Dates: start: 20250828

REACTIONS (1)
  - Interstitial lung disease [Fatal]

NARRATIVE: CASE EVENT DATE: 20250827
